FAERS Safety Report 10276275 (Version 1)
Quarter: 2014Q2

REPORT INFORMATION
  Report Type: Spontaneous
  Country: US (occurrence: None)
  Receive Date: 20140630
  Receipt Date: 20140630
  Transmission Date: 20141212
  Serious: Yes (Hospitalization, Other)
  Sender: FDA-Public Use
  Company Number: US-RRD-14-00074

PATIENT
  Age: 41 Year
  Sex: Male

DRUGS (1)
  1. METHAMPHETAMINE [Suspect]
     Indication: PRODUCT USED FOR UNKNOWN INDICATION

REACTIONS (4)
  - Drug abuse [None]
  - Subarachnoid haemorrhage [None]
  - Subdural haemorrhage [None]
  - Vascular pseudoaneurysm ruptured [None]
